FAERS Safety Report 24177278 (Version 3)
Quarter: 2025Q2

REPORT INFORMATION
  Report Type: Spontaneous
  Country: JP (occurrence: JP)
  Receive Date: 20240806
  Receipt Date: 20250602
  Transmission Date: 20250717
  Serious: Yes (Other)
  Sender: ALEXION PHARMACEUTICALS
  Company Number: 2024A175068

PATIENT
  Age: 5 Decade

DRUGS (5)
  1. TRUQAP [Suspect]
     Active Substance: CAPIVASERTIB
     Indication: Breast cancer recurrent
  2. FASLODEX [Suspect]
     Active Substance: FULVESTRANT
     Indication: Breast cancer recurrent
  3. FASLODEX [Suspect]
     Active Substance: FULVESTRANT
  4. ABEMACICLIB [Concomitant]
     Active Substance: ABEMACICLIB
     Indication: Breast cancer recurrent
     Route: 065
  5. Lh-rh [Concomitant]
     Indication: Breast cancer recurrent
     Route: 065

REACTIONS (3)
  - Metastases to central nervous system [Unknown]
  - Metastases to liver [Unknown]
  - Rash [Recovered/Resolved]
